FAERS Safety Report 16641925 (Version 3)
Quarter: 2019Q3

REPORT INFORMATION
  Report Type: Spontaneous
  Country: JP (occurrence: JP)
  Receive Date: 20190729
  Receipt Date: 20190827
  Transmission Date: 20191004
  Serious: Yes (Death, Hospitalization, Other)
  Sender: FDA-Public Use
  Company Number: JP-AMGEN-JPNSP2019119623

PATIENT
  Age: 84 Year
  Sex: Female
  Weight: 45 kg

DRUGS (8)
  1. EDIROL [Concomitant]
     Active Substance: ELDECALCITOL
     Dosage: 0.75 MICROGRAM, QD AFTER BREAKFAST
  2. EVENITY [Suspect]
     Active Substance: ROMOSOZUMAB-AQQG
     Indication: OSTEOPOROSIS
     Dosage: 210 MILLIGRAM
     Route: 058
     Dates: start: 20190614
  3. APLACE [Concomitant]
     Active Substance: TROXIPIDE
     Dosage: 100 MILLIGRAM, TID, AFTER EACH MEAL
  4. MECOBALAMIN [Concomitant]
     Active Substance: METHYLCOBALAMIN
     Dosage: 500 MICROGRAM, TID, AFTER EACH MEAL
  5. MYONAL [EPERISONE HYDROCHLORIDE] [Concomitant]
     Active Substance: EPERISONE HYDROCHLORIDE
     Dosage: 50 MILLIGRAM, TID, AFTER EACH MEAL
  6. LYRICA [Concomitant]
     Active Substance: PREGABALIN
     Dosage: BID, 50 MILLIGRAM AFTER BREAKFAST, 150 MILLIGRAM AFTER DINNER
  7. LOXONIN [Concomitant]
     Active Substance: LOXOPROFEN SODIUM
     Dosage: 60 MILLIGRAM, TID, AFTER EACH MEAL
  8. DEPAS [ETIZOLAM] [Concomitant]
     Active Substance: ETIZOLAM
     Dosage: 0.5 MILLIGRAM, AT THE TIME OF SLEEPLESSNESS

REACTIONS (10)
  - Cystitis [Not Recovered/Not Resolved]
  - Fall [Unknown]
  - Gait disturbance [Recovered/Resolved]
  - Cough [Unknown]
  - Death [Fatal]
  - Physical deconditioning [Unknown]
  - Asthenia [Unknown]
  - Hypocalcaemia [Recovered/Resolved]
  - Urinary incontinence [Recovered/Resolved]
  - Mobility decreased [Unknown]

NARRATIVE: CASE EVENT DATE: 20190624
